FAERS Safety Report 6749201-8 (Version None)
Quarter: 2010Q2

REPORT INFORMATION
  Report Type: 
  Country: None (occurrence: None)
  Receive Date: 20100601
  Receipt Date: 20100428
  Transmission Date: 20101027
  Serious: No
  Sender: FDA-Public Use
  Company Number: US-BAYER-201014914BCC

PATIENT
  Age: 69 Year
  Sex: Female
  Weight: 75 kg

DRUGS (4)
  1. ALEVE (CAPLET) [Suspect]
     Indication: ARTHRALGIA
     Dosage: TOTAL DAILY DOSE: 440 MG  UNIT DOSE: 220 MG
     Route: 048
     Dates: start: 20100425, end: 20100425
  2. ALEVE (CAPLET) [Suspect]
     Dosage: TOTAL DAILY DOSE: 440 MG  UNIT DOSE: 220 MG
     Route: 048
     Dates: start: 20100428, end: 20100428
  3. ALEVE (CAPLET) [Suspect]
     Dosage: CONSUMER NOT SURE IF SHE TOOK
     Route: 048
     Dates: start: 20100426, end: 20100426
  4. ASPIRIN [Concomitant]

REACTIONS (1)
  - URTICARIA [None]
